FAERS Safety Report 8335373 (Version 5)
Quarter: 2013Q3

REPORT INFORMATION
  Report Type: Spontaneous
  Country: US (occurrence: US)
  Receive Date: 20120113
  Receipt Date: 20130829
  Transmission Date: 20140515
  Serious: Yes (Life-Threatening, Hospitalization)
  Sender: FDA-Public Use
  Company Number: US-SP-2012-00343

PATIENT
  Age: 73 Year
  Sex: Male

DRUGS (2)
  1. THERACYS [Suspect]
     Indication: BLADDER CANCER
     Dosage: MAINTENANCE TREATMENT
     Route: 043
     Dates: start: 20111205
  2. LISINOPRIL [Concomitant]
     Indication: HYPERTENSION

REACTIONS (18)
  - Pneumothorax [Recovered/Resolved]
  - Bovine tuberculosis [Recovered/Resolved]
  - Dyspnoea [Recovered/Resolved]
  - Chest discomfort [Recovered/Resolved]
  - Hypopnoea [Recovered/Resolved]
  - Cough [Recovered/Resolved]
  - Hyponatraemia [Recovered/Resolved]
  - Influenza like illness [Recovered/Resolved]
  - Pyrexia [Recovered/Resolved]
  - Iron deficiency anaemia [Recovered/Resolved]
  - Night sweats [Recovered/Resolved]
  - Disseminated tuberculosis [Recovered/Resolved]
  - Hypoxia [Recovered/Resolved]
  - Leukopenia [Recovered/Resolved]
  - Anaemia [Recovered/Resolved]
  - Weight decreased [Recovered/Resolved]
  - Vomiting [Recovered/Resolved]
  - Transaminases increased [Recovered/Resolved]
